FAERS Safety Report 12682302 (Version 1)
Quarter: 2016Q3

REPORT INFORMATION
  Report Type: Spontaneous
  Country: US (occurrence: US)
  Receive Date: 20160824
  Receipt Date: 20160824
  Transmission Date: 20161109
  Serious: No
  Sender: FDA-Public Use
  Company Number: US-ASTRAZENECA-2016SE88288

PATIENT
  Age: 59 Year
  Sex: Male

DRUGS (4)
  1. CRESTOR [Suspect]
     Active Substance: ROSUVASTATIN CALCIUM
     Indication: PROPHYLAXIS
     Dosage: 5.0MG UNKNOWN
     Route: 048
  2. IRBESARTAN. [Concomitant]
     Active Substance: IRBESARTAN
     Indication: HYPERTENSION
  3. COATED BAYER ASPIRIN, LOW DOSE [Concomitant]
  4. NAPROXIN [Concomitant]
     Active Substance: NAPROXEN

REACTIONS (3)
  - Joint injury [Unknown]
  - Muscle spasms [Unknown]
  - Discomfort [Unknown]
